FAERS Safety Report 8855153 (Version 1)
Quarter: 2012Q4

REPORT INFORMATION
  Report Type: 
  Country: US (occurrence: US)
  Receive Date: 20121023
  Receipt Date: 20121023
  Transmission Date: 20130627
  Serious: No
  Sender: FDA-Public Use
  Company Number: US-ASTRAZENECA-2012SE77482

PATIENT
  Age: 65 Year
  Sex: Female
  Weight: 56.7 kg

DRUGS (5)
  1. CRESTOR [Suspect]
     Indication: BLOOD CHOLESTEROL ABNORMAL
     Dosage: 5 OR 10 MG DOSE UNKNOWN
     Route: 048
     Dates: end: 2007
  2. CRESTOR [Suspect]
     Indication: BLOOD CHOLESTEROL ABNORMAL
     Route: 048
     Dates: start: 201208
  3. CRESTOR [Suspect]
     Indication: BLOOD CHOLESTEROL ABNORMAL
     Route: 048
     Dates: start: 201210
  4. PAXIL [Concomitant]
     Indication: ANXIETY
  5. ACID REFLUX MEDS [Concomitant]
     Indication: GASTROOESOPHAGEAL REFLUX DISEASE

REACTIONS (4)
  - Myalgia [Unknown]
  - Blood cholesterol increased [Unknown]
  - Intentional drug misuse [Unknown]
  - Off label use [Unknown]
